FAERS Safety Report 8535954-5 (Version None)
Quarter: 2012Q3

REPORT INFORMATION
  Report Type: 
  Country: None (occurrence: None)
  Receive Date: 20120725
  Receipt Date: 20120713
  Transmission Date: 20120928
  Serious: Yes (Death, Other)
  Sender: FDA-Public Use
  Company Number: JP-009507513-2012SP019329

PATIENT

DRUGS (6)
  1. MIRTAZAPINE [Suspect]
     Dosage: 7.5 MG, QD
     Route: 048
     Dates: start: 20100903, end: 20100918
  2. DULOXETINE HYDROCHLORIDE [Concomitant]
     Dosage: 1 TABLET A DAY
     Route: 048
  3. BROTIZOLAM [Concomitant]
     Indication: INSOMNIA
     Dosage: 3 TABLETS A DAY, UPDATE (26JUN2012)
     Route: 048
     Dates: start: 20090907
  4. MIRTAZAPINE [Suspect]
     Indication: DEPRESSION
     Dosage: 15 MG, QD
     Route: 048
     Dates: start: 20090907, end: 20090914
  5. BROTIZOLAM [Concomitant]
     Dosage: 1.5 TABLETS A DAY, UPDATE (26JUN2012)
     Route: 048
     Dates: start: 20090902
  6. ALPRAZOLAM [Concomitant]
     Indication: ANXIETY
     Dosage: UPDATE (26JUN2012)
     Route: 048
     Dates: start: 20090902

REACTIONS (2)
  - DELIRIUM [None]
  - PNEUMONIA [None]
